FAERS Safety Report 24276977 (Version 1)
Quarter: 2024Q3

REPORT INFORMATION
  Report Type: Spontaneous
  Country: US (occurrence: US)
  Receive Date: 20240903
  Receipt Date: 20240903
  Transmission Date: 20241017
  Serious: Yes (Other)
  Sender: BRISTOL MYERS SQUIBB
  Company Number: US-BRISTOL-MYERS SQUIBB COMPANY-2024-135273

PATIENT
  Age: 89 Year
  Sex: Female
  Weight: 60.78 kg

DRUGS (28)
  1. POMALYST [Suspect]
     Active Substance: POMALIDOMIDE
     Indication: Plasma cell myeloma
     Dosage: 14/28
     Route: 048
     Dates: start: 20231010
  2. POMALYST [Suspect]
     Active Substance: POMALIDOMIDE
     Dosage: ONE CAPSULE (2MG) BY MOUTH ONCE DAILY FOR 21 DAYS ON AND 7 DAYS OFF OF EACH 28 DAYS CYCLE
     Route: 048
     Dates: start: 20240423
  3. POMALYST [Suspect]
     Active Substance: POMALIDOMIDE
     Dosage: ONE CAPSULE (2MG) BY MOUTH ONCE DAILY FOR 21 DAYS ON AND 7 DAYS OFF OF EACH 28 DAYS CYCLE
     Route: 048
     Dates: start: 20240528
  4. POMALYST [Suspect]
     Active Substance: POMALIDOMIDE
     Dosage: ONE CAPSULE (2MG) BY MOUTH ONCE DAILY FOR 21 DAYS ON AND 7 DAYS OFF OF EACH 28 DAYS CYCLE
     Route: 048
     Dates: start: 20240620
  5. POMALYST [Suspect]
     Active Substance: POMALIDOMIDE
     Dosage: ONE CAPSULE (2MG) BY MOUTH ONCE DAILY FOR 21 DAYS ON AND 7 DAYS OFF OF EACH 28 DAYS CYCLE
     Route: 048
     Dates: start: 20240719
  6. POMALYST [Suspect]
     Active Substance: POMALIDOMIDE
     Dosage: ONE CAPSULE (2MG) BY MOUTH ONCE DAILY FOR 14 DAYS ON AND 14 DAYS OFF OF EACH 28 DAYS CYCLE
     Route: 048
     Dates: start: 20240823
  7. POMALYST [Suspect]
     Active Substance: POMALIDOMIDE
     Dosage: 14/28
     Route: 048
  8. ELIQUIS [Concomitant]
     Active Substance: APIXABAN
     Indication: Product used for unknown indication
     Route: 048
     Dates: start: 20240425
  9. VALACYCLOVIR HYDROCHLORIDE [Concomitant]
     Active Substance: VALACYCLOVIR HYDROCHLORIDE
     Indication: Product used for unknown indication
     Dates: start: 20240425
  10. VITAMIN D3 [Concomitant]
     Active Substance: CHOLECALCIFEROL
     Indication: Product used for unknown indication
     Dosage: 200 UT
     Dates: start: 20230111
  11. PRONUTRIENTS PROBIOTIC [Concomitant]
     Indication: Product used for unknown indication
     Dosage: PACK
     Dates: start: 20230111
  12. CYANOCOBALAMIN [Concomitant]
     Active Substance: CYANOCOBALAMIN
     Indication: Product used for unknown indication
     Dates: start: 20230111
  13. MAGNESIUM OXIDE [Concomitant]
     Active Substance: MAGNESIUM OXIDE
     Indication: Nutritional supplementation
     Dosage: 400 TABLETS
     Dates: start: 20230111
  14. FAMOTIDINE [Concomitant]
     Active Substance: FAMOTIDINE
     Indication: Product used for unknown indication
     Route: 048
     Dates: start: 20230111
  15. LATANOPROST [Concomitant]
     Active Substance: LATANOPROST
     Indication: Product used for unknown indication
     Dates: start: 20230111
  16. SENNA LEAF [Concomitant]
     Active Substance: SENNA LEAF
     Indication: Product used for unknown indication
     Dates: start: 20230111
  17. ASPIRIN [Concomitant]
     Active Substance: ASPIRIN
     Indication: Product used for unknown indication
     Dosage: CHEW
     Dates: start: 20230111
  18. DORZOLAMIDE HYDROCHLORIDE [Concomitant]
     Active Substance: DORZOLAMIDE HYDROCHLORIDE
     Indication: Product used for unknown indication
     Dates: start: 20230111
  19. DEXAMETHASONE [Concomitant]
     Active Substance: DEXAMETHASONE
     Indication: Product used for unknown indication
     Route: 048
     Dates: start: 20230105
  20. AMLODIPINE BESYLATE [Concomitant]
     Active Substance: AMLODIPINE BESYLATE
     Indication: Product used for unknown indication
     Dates: start: 20230105
  21. HYDROCHLOROTHIAZIDE [Concomitant]
     Active Substance: HYDROCHLOROTHIAZIDE
     Indication: Product used for unknown indication
     Dates: start: 20230105
  22. METHIMAZOLE [Concomitant]
     Active Substance: METHIMAZOLE
     Indication: Product used for unknown indication
     Dates: start: 20230105
  23. POTASSIUM CHLORIDE [Concomitant]
     Active Substance: POTASSIUM CHLORIDE
     Indication: Product used for unknown indication
     Dosage: TBCR
     Dates: start: 20230105
  24. REVLIMID [Concomitant]
     Active Substance: LENALIDOMIDE
     Indication: Product used for unknown indication
     Dosage: ONE CAPSULE (15 MG) BY MOUTH ONCE DAILY FOR 21 DAYS ON AND 7 DAYS OFF OF EACH 28 DAYS CYCLE TAKE BY
     Route: 048
     Dates: start: 20230615
  25. REVLIMID [Concomitant]
     Active Substance: LENALIDOMIDE
     Dosage: ONE CAPSULE (10 MG) BY MOUTH ONCE DAILY FOR 21 DAYS ON AND 7 DAYS OFF OF EACH 28 DAYS CYCLE TAKE BY
     Route: 048
     Dates: start: 20231006
  26. REVLIMID [Concomitant]
     Active Substance: LENALIDOMIDE
     Dosage: ONE CAPSULE (10 MG) BY MOUTH ONCE DAILY FOR 21 DAYS ON AND 7 DAYS OFF OF EACH 28 DAYS CYCLE TAKE BY
     Route: 048
     Dates: start: 20231102
  27. REVLIMID [Concomitant]
     Active Substance: LENALIDOMIDE
     Dosage: ONE CAPSULE (10 MG) BY MOUTH ONCE DAILY FOR 21 DAYS ON AND 7 DAYS OFF OF EACH 28 DAYS CYCLE
     Route: 048
     Dates: start: 20231113
  28. REVLIMID [Concomitant]
     Active Substance: LENALIDOMIDE
     Dosage: ONE CAPSULE (15 MG) BY MOUTH ONCE DAILY FOR 21 DAYS ON AND 7 DAYS OFF OF EACH 28 DAYS CYCLE TAKE BY
     Route: 048
     Dates: start: 20240515

REACTIONS (2)
  - Cytopenia [Recovering/Resolving]
  - Off label use [Unknown]

NARRATIVE: CASE EVENT DATE: 20240823
